FAERS Safety Report 7235992-9 (Version None)
Quarter: 2011Q1

REPORT INFORMATION
  Report Type: 
  Country: None (occurrence: None)
  Receive Date: 20110120
  Receipt Date: 20110117
  Transmission Date: 20110831
  Serious: Yes (Other)
  Sender: FDA-Public Use
  Company Number: B0694405A

PATIENT
  Age: 80 Year
  Sex: Female

DRUGS (2)
  1. XELODA [Concomitant]
     Route: 065
  2. TYKERB [Suspect]
     Route: 065

REACTIONS (2)
  - DIARRHOEA [None]
  - SKIN TOXICITY [None]
